FAERS Safety Report 23994329 (Version 1)
Quarter: 2024Q2

REPORT INFORMATION
  Report Type: Spontaneous
  Country: US (occurrence: US)
  Receive Date: 20240620
  Receipt Date: 20240620
  Transmission Date: 20240716
  Serious: Yes (Other)
  Sender: FDA-Public Use
  Company Number: US-MYLANLABS-2024M1055741

PATIENT
  Age: 56 Year
  Sex: Female

DRUGS (4)
  1. MELOXICAM [Suspect]
     Active Substance: MELOXICAM
     Indication: Back pain
     Dosage: UNK
     Route: 065
     Dates: start: 2020
  2. MELOXICAM [Suspect]
     Active Substance: MELOXICAM
     Indication: Allodynia
  3. ROBAXIN [Suspect]
     Active Substance: METHOCARBAMOL
     Indication: Back pain
     Dosage: UNK
     Route: 065
     Dates: start: 2020
  4. ROBAXIN [Suspect]
     Active Substance: METHOCARBAMOL
     Indication: Allodynia

REACTIONS (1)
  - Drug ineffective [Unknown]

NARRATIVE: CASE EVENT DATE: 20200101
